FAERS Safety Report 4715712-X (Version None)
Quarter: 2005Q2

REPORT INFORMATION
  Report Type: 
  Country: None (occurrence: None)
  Receive Date: 20050630
  Receipt Date: 20050428
  Transmission Date: 20051028
  Serious: No
  Sender: FDA-Public Use
  Company Number: 214182

PATIENT
  Age: 60 Year
  Sex: Female

DRUGS (1)
  1. AVASTIN [Suspect]
     Indication: COLORECTAL CANCER
     Dosage: UNK, Q2W, INTRAVENOUS
     Route: 042
     Dates: start: 20050215

REACTIONS (2)
  - HEAT RASH [None]
  - PRURITUS [None]
